FAERS Safety Report 4322154-8 (Version None)
Quarter: 2004Q1

REPORT INFORMATION
  Report Type: 
  Country: None (occurrence: None)
  Receive Date: 20040319
  Receipt Date: 20040210
  Transmission Date: 20041129
  Serious: Yes (Hospitalization)
  Sender: FDA-Public Use
  Company Number: A01200400661

PATIENT
  Age: 48 Year
  Sex: Male

DRUGS (5)
  1. PLAVIX [Suspect]
     Indication: CORONARY ARTERIAL STENT INSERTION
     Dosage: 75 MG QD
     Route: 048
     Dates: start: 20040109, end: 20040124
  2. BEZAFIBRATE [Concomitant]
  3. ATORVASTATIN [Concomitant]
  4. CILAZAPRIL [Concomitant]
  5. GLIPIZIDE [Concomitant]

REACTIONS (7)
  - ABDOMINAL HAEMATOMA [None]
  - ABDOMINAL WALL ABSCESS [None]
  - HAEMATOMA INFECTION [None]
  - PANCREATIC HAEMORRHAGE [None]
  - PANCREATIC MASS [None]
  - PSEUDOMONAS INFECTION [None]
  - PURULENT DISCHARGE [None]
